FAERS Safety Report 4648693-8 (Version None)
Quarter: 2005Q2

REPORT INFORMATION
  Report Type: 
  Country: None (occurrence: None)
  Receive Date: 20050427
  Receipt Date: 20050418
  Transmission Date: 20051028
  Serious: Yes (Other)
  Sender: FDA-Public Use
  Company Number: 2005-04-0236

PATIENT
  Age: 36 Year
  Sex: Male

DRUGS (5)
  1. TEMOZOLOMIDE CAPSULES [Suspect]
     Indication: GLIOMA
     Dosage: ORAL
     Route: 048
     Dates: start: 20050101
  2. LYRICA [Suspect]
     Indication: EPILEPSY
     Dosage: 225-300 MG ORAL
     Route: 048
     Dates: start: 20050207
  3. CARBAMAZEPINE [Suspect]
     Indication: EPILEPSY
     Dosage: 400 MG TID
  4. PHENYTOIN [Concomitant]
  5. TEGRETOL [Concomitant]

REACTIONS (3)
  - CONVULSION [None]
  - DIZZINESS [None]
  - DRUG INTERACTION [None]
